FAERS Safety Report 6653178-3 (Version None)
Quarter: 2010Q1

REPORT INFORMATION
  Report Type: 
  Country: None (occurrence: None)
  Receive Date: 20100326
  Receipt Date: 20100315
  Transmission Date: 20100710
  Serious: Yes (Death, Hospitalization)
  Sender: FDA-Public Use
  Company Number: FR-BRISTOL-MYERS SQUIBB COMPANY-15018997

PATIENT
  Age: 93 Year
  Sex: Male

DRUGS (6)
  1. CYCLOPHOSPHAMIDE [Suspect]
     Indication: B-CELL LYMPHOMA
     Dosage: EVERY 3 TO 4 WEEKS
  2. DOXORUBICIN HCL [Suspect]
     Indication: B-CELL LYMPHOMA
     Dosage: EVERY 3 TO 4 WEEKS
  3. VINCRISTINE SULFATE [Suspect]
     Indication: B-CELL LYMPHOMA
     Dosage: EVERY 3 TO 4 WEEKS
  4. RITUXIMAB [Suspect]
     Indication: B-CELL LYMPHOMA
     Dosage: FOR 5 DAYS;EVERY 3 TO 4 WEEKS
  5. PREDNISONE TAB [Suspect]
     Indication: B-CELL LYMPHOMA
     Dosage: FOR 5 DAYS;EVERY 3 TO 4 WEEKS
  6. PEGFILGRASTIM [Concomitant]
     Indication: PROPHYLAXIS

REACTIONS (4)
  - ATRIAL FIBRILLATION [None]
  - BEDRIDDEN [None]
  - BRONCHOPNEUMOPATHY [None]
  - CELLULITIS GANGRENOUS [None]
